FAERS Safety Report 7956673-X (Version None)
Quarter: 2011Q4

REPORT INFORMATION
  Report Type: 
  Country: None (occurrence: None)
  Receive Date: 20111205
  Receipt Date: 20111124
  Transmission Date: 20120403
  Serious: Yes (Hospitalization)
  Sender: FDA-Public Use
  Company Number: CA-JNJFOC-20111110200

PATIENT
  Sex: Female
  Weight: 41.3 kg

DRUGS (11)
  1. FOLIC ACID [Concomitant]
  2. REMICADE [Suspect]
     Indication: CROHN'S DISEASE
     Route: 042
     Dates: start: 20090105
  3. OXAZEPAM [Concomitant]
  4. SCOPOLAMINE [Concomitant]
  5. ALTACE [Concomitant]
  6. MICRO-K [Concomitant]
  7. PANTOPRAZOLE SODIUM [Concomitant]
  8. FLOVENT [Concomitant]
  9. NULCERAN [Concomitant]
  10. CARDIZEM [Concomitant]
  11. PERCOCET [Concomitant]

REACTIONS (3)
  - DEHYDRATION [None]
  - CROHN'S DISEASE [None]
  - MALNUTRITION [None]
